FAERS Safety Report 5829244-9 (Version None)
Quarter: 2008Q3

REPORT INFORMATION
  Report Type: 
  Country: None (occurrence: None)
  Receive Date: 20080731
  Receipt Date: 20080708
  Transmission Date: 20090109
  Serious: No
  Sender: FDA-Public Use
  Company Number: US-BOEHRINGER INGELHEIM GMBH, GERMANY-2008-BP-10697BP

PATIENT
  Age: 54 Year
  Sex: Male

DRUGS (9)
  1. MIRAPEX [Suspect]
     Indication: PARKINSON'S DISEASE
     Route: 048
     Dates: start: 19980201
  2. MIRAPEX [Suspect]
     Route: 048
  3. ARTANE [Concomitant]
  4. SINEMET [Concomitant]
  5. ENTACAPONE [Concomitant]
  6. FLEXERIL [Concomitant]
  7. PREVACID [Concomitant]
  8. IBUPROFEN [Concomitant]
  9. INSULIN [Concomitant]

REACTIONS (1)
  - PATHOLOGICAL GAMBLING [None]
